FAERS Safety Report 9288439 (Version 1)
Quarter: 2013Q2

REPORT INFORMATION
  Report Type: Spontaneous
  Country: BR (occurrence: BR)
  Receive Date: 20130514
  Receipt Date: 20130514
  Transmission Date: 20140414
  Serious: Yes (Hospitalization, Other)
  Sender: FDA-Public Use
  Company Number: BR-PFIZER INC-2013146120

PATIENT
  Age: 56 Year
  Sex: Male

DRUGS (1)
  1. FRONTAL [Suspect]
     Dosage: 0.5 MG, 1X/DAY
     Route: 048
     Dates: start: 19980509

REACTIONS (2)
  - Lung neoplasm malignant [Unknown]
  - Neuropathy peripheral [Unknown]
